FAERS Safety Report 12450969 (Version 1)
Quarter: 2016Q2

REPORT INFORMATION
  Report Type: Spontaneous
  Country: LT (occurrence: LT)
  Receive Date: 20160609
  Receipt Date: 20160609
  Transmission Date: 20160815
  Serious: Yes (Hospitalization)
  Sender: FDA-Public Use
  Company Number: LT-ELI_LILLY_AND_COMPANY-LT201606003021

PATIENT
  Age: 46 Year
  Sex: Male

DRUGS (1)
  1. ERBITUX [Suspect]
     Active Substance: CETUXIMAB
     Indication: LARYNGEAL SQUAMOUS CELL CARCINOMA
     Dosage: UNK UNK, UNKNOWN
     Route: 065
     Dates: start: 20130319, end: 20130506

REACTIONS (8)
  - Pyrexia [Unknown]
  - Poisoning [Unknown]
  - Dermatitis acneiform [Unknown]
  - Mucosal inflammation [Unknown]
  - Dermatitis [Unknown]
  - Dehydration [Unknown]
  - Lung infiltration [Unknown]
  - Radiation injury [Unknown]

NARRATIVE: CASE EVENT DATE: 201304
